FAERS Safety Report 11540462 (Version 1)
Quarter: 2015Q3

REPORT INFORMATION
  Report Type: Spontaneous
  Country: US (occurrence: US)
  Receive Date: 20150923
  Receipt Date: 20150923
  Transmission Date: 20151125
  Serious: No
  Sender: FDA-Public Use
  Company Number: US-BEH-2014047016

PATIENT
  Sex: Female
  Weight: 49 kg

DRUGS (24)
  1. ACETAMINOPHEN. [Concomitant]
     Active Substance: ACETAMINOPHEN
  2. DIPHENHYDRAMINE. [Concomitant]
     Active Substance: DIPHENHYDRAMINE
  3. TAMIFLU [Concomitant]
     Active Substance: OSELTAMIVIR PHOSPHATE
  4. TRAMADOL. [Concomitant]
     Active Substance: TRAMADOL
  5. HYDROXYZINE [Concomitant]
     Active Substance: HYDROXYZINE\HYDROXYZINE HYDROCHLORIDE
  6. VALIUM [Concomitant]
     Active Substance: DIAZEPAM
  7. PRIVIGEN [Suspect]
     Active Substance: HUMAN IMMUNOGLOBULIN G
     Indication: POLYMYOSITIS
     Route: 042
  8. DEXTROSE. [Concomitant]
     Active Substance: DEXTROSE
  9. HEPARIN [Concomitant]
     Active Substance: HEPARIN SODIUM
  10. VANICREAM [Concomitant]
     Active Substance: TITANIUM DIOXIDE\ZINC OXIDE
  11. PRIVIGEN [Suspect]
     Active Substance: HUMAN IMMUNOGLOBULIN G
     Indication: DERMATOMYOSITIS
     Route: 042
  12. SODIUM CHLORIDE. [Concomitant]
     Active Substance: SODIUM CHLORIDE
  13. EPIPEN [Concomitant]
     Active Substance: EPINEPHRINE
  14. HYDROCORT-PRAMOXINE CREAM [Concomitant]
  15. REMICADE [Concomitant]
     Active Substance: INFLIXIMAB
  16. PRAMOXINE [Concomitant]
     Active Substance: PRAMOXINE
  17. FOLIC ACID. [Concomitant]
     Active Substance: FOLIC ACID
  18. SOLU-MEDROL [Concomitant]
     Active Substance: METHYLPREDNISOLONE SODIUM SUCCINATE
  19. AMMONIUM LACTATE LOTION [Concomitant]
     Active Substance: AMMONIUM LACTATE
  20. PROTOPIC OINT [Concomitant]
  21. PREDNISONE. [Concomitant]
     Active Substance: PREDNISONE
  22. LMX [Concomitant]
     Active Substance: LIDOCAINE
  23. PLAQUENIL [Concomitant]
     Active Substance: HYDROXYCHLOROQUINE SULFATE
  24. PREVACID [Concomitant]
     Active Substance: LANSOPRAZOLE

REACTIONS (1)
  - Dermatitis contact [Unknown]
